FAERS Safety Report 20132822 (Version 24)
Quarter: 2023Q4

REPORT INFORMATION
  Report Type: Spontaneous
  Country: CA (occurrence: CA)
  Receive Date: 20211130
  Receipt Date: 20231206
  Transmission Date: 20240110
  Serious: Yes (Hospitalization, Other)
  Sender: FDA-Public Use
  Company Number: CA-CELLTRION INC.-2021CA016159

PATIENT

DRUGS (23)
  1. INFLECTRA [Suspect]
     Active Substance: INFLIXIMAB-DYYB
     Indication: Crohn^s disease
     Dosage: 5 MG/KG (WEEK 0 IN HOSPITAL), 2,6 WEEKS THEN EVERY 8 WEEKS
     Route: 042
     Dates: start: 20211105
  2. INFLECTRA [Suspect]
     Active Substance: INFLIXIMAB-DYYB
     Dosage: 300 MG, WEEK 2,6 WEEKS THEN EVERY 8 WEEKS
     Route: 042
     Dates: start: 20211119
  3. INFLECTRA [Suspect]
     Active Substance: INFLIXIMAB-DYYB
     Dosage: 300 MG, EVERY 4 WEEKS
     Route: 042
     Dates: start: 20220126
  4. INFLECTRA [Suspect]
     Active Substance: INFLIXIMAB-DYYB
     Dosage: 300 MG, WEEK 2,6 WEEKS THEN EVERY 8 WEEKS
     Route: 042
     Dates: start: 20220318, end: 20220318
  5. INFLECTRA [Suspect]
     Active Substance: INFLIXIMAB-DYYB
     Dosage: 300 MG, WEEK 2,6 WEEKS THEN EVERY 8 WEEKS
     Route: 042
     Dates: start: 20220615
  6. INFLECTRA [Suspect]
     Active Substance: INFLIXIMAB-DYYB
     Dosage: 300 MG, WEEK 2,6 WEEKS THEN EVERY 8 WEEKS
     Route: 042
     Dates: start: 20220824
  7. INFLECTRA [Suspect]
     Active Substance: INFLIXIMAB-DYYB
     Dosage: 400 MG, EVERY 8 WEEKS
     Route: 042
     Dates: start: 20221031
  8. INFLECTRA [Suspect]
     Active Substance: INFLIXIMAB-DYYB
     Dosage: 400 MG, EVERY 8 WEEKS
     Route: 042
     Dates: start: 20221229
  9. INFLECTRA [Suspect]
     Active Substance: INFLIXIMAB-DYYB
     Dosage: 400 MG, EVERY 8 WEEKS (RESCUE DOSE)
     Route: 042
     Dates: start: 20230221
  10. INFLECTRA [Suspect]
     Active Substance: INFLIXIMAB-DYYB
     Dosage: 400 MG (EQUIVALENT 5 MG/KG), EVERY 4 WEEKS
     Route: 042
     Dates: start: 20230322
  11. INFLECTRA [Suspect]
     Active Substance: INFLIXIMAB-DYYB
     Dosage: 400 MG, EVERY 4 WEEKS
     Route: 042
     Dates: start: 20230419
  12. INFLECTRA [Suspect]
     Active Substance: INFLIXIMAB-DYYB
     Dosage: 400 MG, EVERY 4 WEEKS (AFTER 6 WEEKS AND 2 DAYS)
     Route: 042
     Dates: start: 20230602
  13. INFLECTRA [Suspect]
     Active Substance: INFLIXIMAB-DYYB
     Dosage: 400 MG, EVERY 4 WEEKS
     Route: 042
     Dates: start: 20230628
  14. INFLECTRA [Suspect]
     Active Substance: INFLIXIMAB-DYYB
     Dosage: 400 MG, EVERY 4 WEEKS
     Route: 042
     Dates: start: 20230818
  15. INFLECTRA [Suspect]
     Active Substance: INFLIXIMAB-DYYB
     Dosage: 400 MG, EVERY 4 WEEKS
     Route: 042
     Dates: start: 20230913
  16. INFLECTRA [Suspect]
     Active Substance: INFLIXIMAB-DYYB
     Dosage: 400 MG, EVERY 4 WEEKS (6 WEEKS AND 6 DAYS)
     Route: 042
     Dates: start: 20231031
  17. INFLECTRA [Suspect]
     Active Substance: INFLIXIMAB-DYYB
     Dosage: 800 MG, EVERY 4 WEEKS
     Route: 042
     Dates: start: 20231128
  18. DILAUDID [Concomitant]
     Active Substance: HYDROMORPHONE HYDROCHLORIDE
     Dosage: 1 MG, AS NEEDED
     Route: 065
  19. PREDNISONE [Concomitant]
     Active Substance: PREDNISONE
     Dosage: 30 MG
     Dates: start: 20211208
  20. PREDNISONE [Concomitant]
     Active Substance: PREDNISONE
     Dosage: 40 MG
  21. PREDNISONE [Concomitant]
     Active Substance: PREDNISONE
     Dosage: 40 MG, TO TAPER
     Route: 065
  22. PREDNISONE [Concomitant]
     Active Substance: PREDNISONE
     Dosage: 25 MG, 1X/DAY
  23. PREDNISONE [Concomitant]
     Active Substance: PREDNISONE
     Dosage: 40 MG, TO TAPER
     Route: 065

REACTIONS (29)
  - Crohn^s disease [Recovering/Resolving]
  - Mental disorder [Unknown]
  - Condition aggravated [Recovering/Resolving]
  - Uveitis [Not Recovered/Not Resolved]
  - Weight increased [Unknown]
  - Pruritus [Recovered/Resolved]
  - Abortion spontaneous [Recovered/Resolved]
  - Aphthous ulcer [Not Recovered/Not Resolved]
  - Arthralgia [Not Recovered/Not Resolved]
  - Anal fissure [Recovered/Resolved]
  - Abscess [Recovered/Resolved]
  - Musculoskeletal discomfort [Not Recovered/Not Resolved]
  - Weight decreased [Not Recovered/Not Resolved]
  - Anxiety [Recovered/Resolved]
  - Poor venous access [Unknown]
  - Malaise [Not Recovered/Not Resolved]
  - Tachycardia [Recovered/Resolved]
  - Rash [Unknown]
  - Urticaria [Recovering/Resolving]
  - Erythema [Recovering/Resolving]
  - Pruritus [Recovering/Resolving]
  - Nausea [Not Recovered/Not Resolved]
  - Vomiting [Not Recovered/Not Resolved]
  - Off label use [Unknown]
  - Off label use [Unknown]
  - Off label use [Unknown]
  - Intentional product use issue [Unknown]
  - Inappropriate schedule of product administration [Unknown]
  - Product administration interrupted [Unknown]

NARRATIVE: CASE EVENT DATE: 20211105
